FAERS Safety Report 13195696 (Version 1)
Quarter: 2017Q1

REPORT INFORMATION
  Report Type: Spontaneous
  Country: JP (occurrence: JP)
  Receive Date: 20170208
  Receipt Date: 20170208
  Transmission Date: 20170428
  Serious: Yes (Life-Threatening, Hospitalization, Other)
  Sender: FDA-Public Use
  Company Number: JP-ACCORD-048068

PATIENT
  Age: 75 Year
  Sex: Male
  Weight: 51.6 kg

DRUGS (2)
  1. CARBOPLATIN. [Suspect]
     Active Substance: CARBOPLATIN
     Indication: NON-SMALL CELL LUNG CANCER STAGE I
     Dosage: DAY 1 CBDCA, AUC WAS 5 DAY 1,??FROM THE 2ND COURSE, DECREASED TO 80%.
  2. ETOPOSIDE. [Suspect]
     Active Substance: ETOPOSIDE
     Indication: NON-SMALL CELL LUNG CANCER STAGE I
     Dosage: FROM THE 2ND COURSE THE DOSE WAS DECREASED TO 80%.

REACTIONS (5)
  - Drug resistance [Unknown]
  - Thrombocytopenia [Unknown]
  - Anaemia [Unknown]
  - Neutropenia [Unknown]
  - Decreased appetite [Unknown]
